FAERS Safety Report 5472194-0 (Version None)
Quarter: 2007Q3

REPORT INFORMATION
  Report Type: 
  Country: None (occurrence: None)
  Receive Date: 20070926
  Receipt Date: 20070919
  Transmission Date: 20080115
  Serious: Yes (Other)
  Sender: FDA-Public Use
  Company Number: 2007SP017170

PATIENT
  Age: 42 Year
  Sex: Male

DRUGS (2)
  1. CLARINEX [Suspect]
     Indication: MULTIPLE ALLERGIES
     Dosage: PO
     Route: 048
  2. ALLERGY SHOT [Suspect]
     Indication: HYPERSENSITIVITY
     Dates: start: 20070719

REACTIONS (4)
  - DRUG INEFFECTIVE [None]
  - POOR QUALITY DRUG ADMINISTERED [None]
  - RESPIRATORY DISTRESS [None]
  - URTICARIA [None]
